FAERS Safety Report 6491398-1 (Version None)
Quarter: 2009Q4

REPORT INFORMATION
  Report Type: 
  Country: None (occurrence: None)
  Receive Date: 20091211
  Receipt Date: 20091028
  Transmission Date: 20100525
  Serious: Yes (Life-Threatening, Other)
  Sender: FDA-Public Use
  Company Number: JP-SANOFI-AVENTIS-A01200909226

PATIENT
  Age: 83 Year
  Sex: Male
  Weight: 70.8 kg

DRUGS (9)
  1. CLOPIDOGREL BISULFATE [Suspect]
     Indication: LACUNAR INFARCTION
     Dosage: UNIT DOSE: 75 MG
     Route: 048
     Dates: start: 20090804, end: 20090826
  2. CLOPIDOGREL BISULFATE [Suspect]
     Indication: TRANSIENT ISCHAEMIC ATTACK
     Dosage: UNIT DOSE: 75 MG
     Route: 048
     Dates: start: 20090804, end: 20090826
  3. DIOVAN [Concomitant]
     Indication: HYPERTENSION
     Route: 048
     Dates: start: 20080430
  4. MELBIN [Concomitant]
     Indication: DIABETES MELLITUS
     Route: 048
     Dates: start: 20070710
  5. CYANOCOBALAMIN [Concomitant]
     Route: 048
     Dates: start: 20071002
  6. MUCOSTA [Concomitant]
     Route: 048
     Dates: start: 20060921
  7. EPADEL [Concomitant]
     Indication: HYPERLIPIDAEMIA
     Route: 048
     Dates: start: 20081226
  8. PEON [Concomitant]
     Route: 048
     Dates: start: 20090512
  9. ARICEPT [Concomitant]
     Indication: DEMENTIA ALZHEIMER'S TYPE
     Route: 048
     Dates: start: 20020512

REACTIONS (7)
  - DEHYDRATION [None]
  - DIARRHOEA [None]
  - DIZZINESS [None]
  - HYPOTENSION [None]
  - MELAENA [None]
  - MYOCARDIAL INFARCTION [None]
  - TACHYARRHYTHMIA [None]
